FAERS Safety Report 4403828-7 (Version None)
Quarter: 2004Q3

REPORT INFORMATION
  Report Type: 
  Country: None (occurrence: None)
  Receive Date: 20040719
  Receipt Date: 20040706
  Transmission Date: 20050211
  Serious: Yes (Hospitalization)
  Sender: FDA-Public Use
  Company Number: 04P-087-0266442-00

PATIENT
  Age: 67 Year
  Sex: Female

DRUGS (4)
  1. BIAXIN [Suspect]
     Indication: PYREXIA
     Dosage: PER ORAL
     Route: 048
     Dates: start: 20030101
  2. SULPERAZON [Concomitant]
  3. CLINDAMYCIN [Concomitant]
  4. PANIPENEM/BETAMIPRON [Concomitant]

REACTIONS (3)
  - CLOSTRIDIUM COLITIS [None]
  - ENTERITIS INFECTIOUS [None]
  - ILEUS PARALYTIC [None]
